FAERS Safety Report 8274521-8 (Version None)
Quarter: 2012Q2

REPORT INFORMATION
  Report Type: 
  Country: None (occurrence: None)
  Receive Date: 20120411
  Receipt Date: 20120327
  Transmission Date: 20120825
  Serious: Yes (Hospitalization)
  Sender: FDA-Public Use
  Company Number: AU-WATSON-2012-05876

PATIENT
  Age: 15 Year
  Sex: Female

DRUGS (5)
  1. AZATHIOPRINE [Suspect]
     Indication: INTENTIONAL SELF-INJURY
     Dosage: SMALL QUANTITY
     Route: 048
  2. PREDNISOLONE [Suspect]
     Indication: INTENTIONAL SELF-INJURY
     Dosage: SMALL QUANTITY
     Route: 048
  3. METHOTREXATE [Suspect]
     Indication: INTENTIONAL SELF-INJURY
     Dosage: SMALL QUANTITY
     Route: 048
  4. DAPSONE [Suspect]
     Indication: INTENTIONAL OVERDOSE
     Dosage: 7.2 G, SINGLE
     Route: 048
  5. METHYLPREDNISOLONE [Suspect]
     Indication: INTENTIONAL SELF-INJURY
     Dosage: SMALL QUANTITY
     Route: 048

REACTIONS (3)
  - LACTIC ACIDOSIS [None]
  - INTENTIONAL OVERDOSE [None]
  - METHAEMOGLOBINAEMIA [None]
